FAERS Safety Report 22520638 (Version 1)
Quarter: 2023Q2

REPORT INFORMATION
  Report Type: Spontaneous
  Country: HU (occurrence: HU)
  Receive Date: 20230605
  Receipt Date: 20230605
  Transmission Date: 20230721
  Serious: Yes (Other)
  Sender: FDA-Public Use
  Company Number: HU-JNJFOC-20230533371

PATIENT
  Age: 51 Year
  Sex: Female

DRUGS (1)
  1. SPRAVATO [Suspect]
     Active Substance: ESKETAMINE
     Indication: Product used for unknown indication

REACTIONS (10)
  - Hallucination, visual [Recovered/Resolved]
  - Morbid thoughts [Recovered/Resolved]
  - Sensory disturbance [Recovered/Resolved]
  - Disorientation [Recovered/Resolved]
  - Diplopia [Recovered/Resolved]
  - Feeling abnormal [Unknown]
  - Hypoaesthesia oral [Recovered/Resolved]
  - Dizziness [Recovered/Resolved]
  - Hypoaesthesia [Recovered/Resolved]
  - Oxygen saturation decreased [Recovered/Resolved]
